FAERS Safety Report 9388045 (Version 2)
Quarter: 2013Q3

REPORT INFORMATION
  Report Type: Spontaneous
  Country: US (occurrence: None)
  Receive Date: 20130703
  Receipt Date: 20130731
  Transmission Date: 20140515
  Serious: Yes (Other)
  Sender: FDA-Public Use
  Company Number: ACO_36198_2013

PATIENT
  Age: 77 Year
  Sex: Female
  Weight: 49.9 kg

DRUGS (5)
  1. AMPYRA [Suspect]
     Indication: MULTIPLE SCLEROSIS
     Route: 048
     Dates: start: 2011
  2. AMPYRA [Suspect]
     Indication: GAIT DISTURBANCE
     Route: 048
     Dates: start: 2011
  3. VITAMIN B-12 (CYANOCOBALAMIN) [Concomitant]
  4. MACROBID (NITROFURANTOIN) [Concomitant]
  5. ULTRAM (TRAMADOL HYDROCHLORIDE) [Concomitant]

REACTIONS (15)
  - Non-Hodgkin^s lymphoma [None]
  - Hair growth abnormal [None]
  - Onychoclasis [None]
  - Nail growth abnormal [None]
  - Fall [None]
  - Laceration [None]
  - Stress [None]
  - Madarosis [None]
  - Skin irritation [None]
  - Abdominal distension [None]
  - Urinary tract infection [None]
  - Balance disorder [None]
  - Therapeutic response unexpected [None]
  - Drug ineffective [None]
  - Multiple sclerosis relapse [None]
